FAERS Safety Report 7732757-6 (Version None)
Quarter: 2011Q3

REPORT INFORMATION
  Report Type: 
  Country: None (occurrence: None)
  Receive Date: 20110901
  Receipt Date: 20101007
  Transmission Date: 20111222
  Serious: Yes (Hospitalization)
  Sender: FDA-Public Use
  Company Number: GAM-286-10-US

PATIENT
  Age: 65 Year
  Sex: Female

DRUGS (9)
  1. LEXAPRO [Concomitant]
  2. CRESTOR [Concomitant]
  3. IMURAN [Concomitant]
  4. VALIUM [Concomitant]
  5. MESTINON [Concomitant]
  6. NITROGLYCERIN [Concomitant]
  7. RIBOFLAVIN [Concomitant]
  8. OCTAGAM [Suspect]
     Indication: MYASTHENIA GRAVIS
     Dosage: 30 GM IV X2 DAYS, QMONTH
     Route: 042
     Dates: start: 20100823, end: 20100824
  9. AVAPRO [Concomitant]

REACTIONS (1)
  - MYOCARDIAL INFARCTION [None]
